FAERS Safety Report 9018275 (Version 1)
Quarter: 2013Q1

REPORT INFORMATION
  Report Type: Spontaneous
  Country: AU (occurrence: AU)
  Receive Date: 20130117
  Receipt Date: 20130117
  Transmission Date: 20140127
  Serious: Yes (Other)
  Sender: FDA-Public Use
  Company Number: AU-BAXTER-2013BAX001485

PATIENT
  Sex: Female

DRUGS (2)
  1. BAXTER 0.9% SODIUM CHLORIDE 450MG_50ML INJECTION BP BAG AHB1306_AHB136 [Suspect]
     Indication: PRODUCT USED FOR UNKNOWN INDICATION
     Route: 042
     Dates: start: 20130109, end: 20130109
  2. RITUXIMAB [Suspect]
     Indication: PRODUCT USED FOR UNKNOWN INDICATION
     Dosage: 103 MG/10.3 ML
     Route: 042
     Dates: start: 20130109, end: 20130109

REACTIONS (1)
  - Anaphylactic reaction [Recovered/Resolved]
